FAERS Safety Report 17943089 (Version 1)
Quarter: 2020Q2

REPORT INFORMATION
  Report Type: Spontaneous
  Country: US (occurrence: US)
  Receive Date: 20200625
  Receipt Date: 20200625
  Transmission Date: 20200714
  Serious: Yes (Hospitalization)
  Sender: FDA-Public Use
  Company Number: None

PATIENT
  Age: 73 Year
  Sex: Male
  Weight: 90 kg

DRUGS (8)
  1. ISOSORBIDE MONONITRATE 30MG [Concomitant]
     Active Substance: ISOSORBIDE MONONITRATE
     Dates: start: 20200215, end: 20200304
  2. PANTOPRAZOLE 40MG [Concomitant]
     Active Substance: PANTOPRAZOLE SODIUM
     Dates: start: 20200215, end: 20200304
  3. SERTRALINE 150MG [Concomitant]
     Active Substance: SERTRALINE HYDROCHLORIDE
     Dates: start: 20200215, end: 20200304
  4. HYDROMORPHONE 1MG [Suspect]
     Active Substance: HYDROMORPHONE
  5. METOPROLOL 12.5MG [Concomitant]
     Dates: start: 20200215, end: 20200304
  6. MEXILITINE 150MG [Concomitant]
     Dates: start: 20200215, end: 20200304
  7. AMITIZA [Concomitant]
     Active Substance: LUBIPROSTONE
     Dates: start: 20200215, end: 20200304
  8. MORPHINE SULFATE EXTENDED RELEASE [Suspect]
     Active Substance: MORPHINE SULFATE
     Indication: PAIN
     Route: 048
     Dates: start: 20200219, end: 20200224

REACTIONS (2)
  - Unresponsive to stimuli [None]
  - Hypotension [None]

NARRATIVE: CASE EVENT DATE: 20200223
